FAERS Safety Report 5259178-2 (Version None)
Quarter: 2007Q1

REPORT INFORMATION
  Report Type: 
  Country: None (occurrence: None)
  Receive Date: 20070308
  Receipt Date: 20070224
  Transmission Date: 20070707
  Serious: Yes (Hospitalization, Other)
  Sender: FDA-Public Use
  Company Number: US-PFIZER INC-2006128188

PATIENT
  Sex: Female
  Weight: 134.7 kg

DRUGS (2)
  1. LYRICA [Suspect]
     Route: 048
     Dates: start: 20061001, end: 20061001
  2. CORICIDIN [Suspect]

REACTIONS (2)
  - ADVERSE EVENT [None]
  - HYPOTENSION [None]
